FAERS Safety Report 11850495 (Version 1)
Quarter: 2015Q4

REPORT INFORMATION
  Report Type: Spontaneous
  Country: US (occurrence: US)
  Receive Date: 20151218
  Receipt Date: 20151218
  Transmission Date: 20160305
  Serious: No
  Sender: FDA-Public Use
  Company Number: US-JNJFOC-20151204991

PATIENT
  Age: 4 Year
  Sex: Female
  Weight: 16.33 kg

DRUGS (2)
  1. CHILDRENS MOTRIN [Suspect]
     Active Substance: IBUPROFEN
     Route: 048
  2. CHILDRENS MOTRIN [Suspect]
     Active Substance: IBUPROFEN
     Indication: ACCIDENTAL OVERDOSE
     Dosage: 6 TEASPOONS
     Route: 048
     Dates: start: 20151204, end: 20151204

REACTIONS (2)
  - Accidental overdose [Unknown]
  - Wrong technique in product usage process [Unknown]
